FAERS Safety Report 22081445 (Version 1)
Quarter: 2023Q1

REPORT INFORMATION
  Report Type: Spontaneous
  Country: LB (occurrence: LB)
  Receive Date: 20230310
  Receipt Date: 20230310
  Transmission Date: 20230417
  Serious: Yes (Hospitalization)
  Sender: FDA-Public Use
  Company Number: LB-STRIDES ARCOLAB LIMITED-2023SP003565

PATIENT
  Age: 80 Year
  Sex: Female

DRUGS (6)
  1. METHOTREXATE [Suspect]
     Active Substance: METHOTREXATE
     Indication: Neurodermatitis
     Dosage: 15 MILLIGRAM (PER WEEK)
     Route: 048
  2. ASPIRIN [Concomitant]
     Active Substance: ASPIRIN
     Indication: Product used for unknown indication
     Dosage: UNK
     Route: 065
  3. BISOPROLOL [Concomitant]
     Active Substance: BISOPROLOL
     Indication: Product used for unknown indication
     Dosage: UNK
     Route: 065
  4. AMLODIPINE [Concomitant]
     Active Substance: AMLODIPINE BESYLATE
     Indication: Product used for unknown indication
     Dosage: UNK
     Route: 065
  5. ROSUVASTATIN [Concomitant]
     Active Substance: ROSUVASTATIN
     Indication: Product used for unknown indication
     Dosage: UNK
     Route: 065
  6. LEVOTHYROXINE [Concomitant]
     Active Substance: LEVOTHYROXINE
     Indication: Hypothyroidism
     Dosage: UNK
     Route: 065

REACTIONS (7)
  - Dermatitis bullous [Recovered/Resolved]
  - Skin dystrophy [Recovered/Resolved]
  - Epidermal necrosis [Recovered/Resolved]
  - Superinfection bacterial [Recovered/Resolved]
  - Staphylococcal skin infection [Recovered/Resolved]
  - Toxicity to various agents [Unknown]
  - Off label use [Unknown]
